FAERS Safety Report 7725523-9 (Version None)
Quarter: 2011Q3

REPORT INFORMATION
  Report Type: 
  Country: None (occurrence: None)
  Receive Date: 20110902
  Receipt Date: 20110505
  Transmission Date: 20111222
  Serious: No
  Sender: FDA-Public Use
  Company Number: US-BRISTOL-MYERS SQUIBB COMPANY-15720337

PATIENT
  Age: 66 Year
  Sex: Male

DRUGS (5)
  1. CRESTOR [Concomitant]
  2. KOMBIGLYZE XR [Suspect]
  3. LISINOPRIL [Suspect]
  4. GLIPIZIDE [Concomitant]
  5. ATENOLOL [Concomitant]

REACTIONS (1)
  - LIP SWELLING [None]
